FAERS Safety Report 9330692 (Version 1)
Quarter: 2013Q2

REPORT INFORMATION
  Report Type: Spontaneous
  Country: US (occurrence: None)
  Receive Date: 20130604
  Receipt Date: 20130604
  Transmission Date: 20140414
  Serious: No
  Sender: FDA-Public Use
  Company Number: None

PATIENT
  Age: 88 None
  Sex: Male

DRUGS (1)
  1. ERIVEDGE [Suspect]
     Indication: SKIN CANCER
     Dosage: ONCE DAILY
     Route: 048
     Dates: start: 20130517

REACTIONS (1)
  - Speech disorder [None]
